FAERS Safety Report 8063542-6 (Version None)
Quarter: 2012Q1

REPORT INFORMATION
  Report Type: 
  Country: None (occurrence: None)
  Receive Date: 20120123
  Receipt Date: 20120112
  Transmission Date: 20120608
  Serious: Yes (Death)
  Sender: FDA-Public Use
  Company Number: US-BRISTOL-MYERS SQUIBB COMPANY-16349045

PATIENT
  Sex: Male

DRUGS (1)
  1. COUMADIN [Suspect]
     Route: 048

REACTIONS (1)
  - ACUTE MYELOID LEUKAEMIA [None]
